FAERS Safety Report 10244516 (Version 1)
Quarter: 2014Q1

REPORT INFORMATION
  Report Type: Spontaneous
  Country: US (occurrence: None)
  Receive Date: 20140306
  Receipt Date: 20140306
  Transmission Date: 20141002
  Serious: Yes (Life-Threatening, Other)
  Sender: FDA-Public Use
  Company Number: 163-21880-13023974

PATIENT
  Age: 66 Year
  Sex: Male
  Weight: 93.5 kg

DRUGS (27)
  1. REVLIMID (LENALIDOMIDE) (25 MILLIGRAM, CAPSULES) [Suspect]
     Indication: PLASMA CELL MYELOMA
     Route: 048
     Dates: start: 20130219
  2. VELCADE (BORTEZOMIB) (INJECTION) [Suspect]
     Indication: PLASMA CELL MYELOMA
     Dates: start: 20130219
  3. DECADRON [Suspect]
     Indication: PLASMA CELL MYELOMA
     Route: 048
     Dates: start: 20130219
  4. ZOMETA (ZOLEDRONIC ACID) (UNKNOWN) [Concomitant]
  5. BABY ASPIRIN (ACETYLSALICYLIC ACID) (CHEWABLE TABLETS) [Concomitant]
  6. DUONEB (COMBIVENT) (AEROSOL FOR INHALATION) [Concomitant]
  7. FLOMAX (TAMSULOSIN HYDROCHLORIDE) (CAPSULES) [Concomitant]
  8. LISINOPRIL (TABLETS) (LISINOPRIL) [Concomitant]
  9. METOPROLOL SUCCINATE (TABLETS) [Concomitant]
  10. PRILOSEC (OMEPRAZOLE) (CAPSULES) [Concomitant]
  11. PROCHLORPRAZINE MALEATE (TABLETS) [Concomitant]
  12. DARBEPOETIN ALFA (INJECTION) [Concomitant]
  13. NORMAL SALINE (SODIUM CHLORIDE) (UNKNOWN) [Concomitant]
  14. POTASSIUM CHLORIDE (TABLETS) [Concomitant]
  15. FLUDROCORTISONE ACETATE (TABLETS) [Concomitant]
  16. HYDROCODONE BITARTRATE AND ACETAMINOPHEN (VICODIN) (TABLETS) [Concomitant]
  17. TYLENOL (PARACETAMOL) (TABLETS) [Concomitant]
  18. FENTANYL (POULTICE OR PATCH) [Concomitant]
  19. HUMULIN 70/30 (INJECTION) [Concomitant]
  20. SODIUM CHLORIDE (INJECTION) [Concomitant]
  21. CALCIUM GLUCONATE (INJECTION) [Concomitant]
  22. DICLOXACILLIN SODIUM (DICLOXACILLIN SODIUM MONOHYDRATE) (CAPSULES) [Concomitant]
  23. ANTIBIOTIC (UNKNOWN) [Concomitant]
  24. BENADRYL (DIPHENHYDRAMINE HYDROCHLORIDE) (UNKOWN) [Concomitant]
  25. ARANESP (DARBEPOETIN ALFA) (UNKNOWN) [Concomitant]
  26. INDOMETHACIN (CAPSULES) [Concomitant]
  27. NEUPOGEN (FILGRASTIM) (UNKNOWN) [Concomitant]

REACTIONS (6)
  - Blood pressure systolic decreased [None]
  - Red blood cell count decreased [None]
  - Pancytopenia [None]
  - Pruritus [None]
  - Oropharyngeal pain [None]
  - Neutropenia [None]
